FAERS Safety Report 18926071 (Version 1)
Quarter: 2021Q1

REPORT INFORMATION
  Report Type: Other
  Country: FR (occurrence: FR)
  Receive Date: 20210223
  Receipt Date: 20210223
  Transmission Date: 20210420
  Serious: Yes (Hospitalization)
  Sender: FDA-Public Use
  Company Number: FR-GE HEALTHCARE LIFE SCIENCES-2021CSU000840

PATIENT

DRUGS (2)
  1. VISIPAQUE [Suspect]
     Active Substance: IODIXANOL
     Indication: SCAN
     Dosage: 1 DF, SINGLE
     Route: 042
     Dates: start: 20210120, end: 20210120
  2. VISIPAQUE [Suspect]
     Active Substance: IODIXANOL
     Indication: PRODUCT USED FOR UNKNOWN INDICATION

REACTIONS (3)
  - Acute kidney injury [Recovering/Resolving]
  - Eosinophilia [Recovering/Resolving]
  - Dermatitis exfoliative generalised [Recovering/Resolving]

NARRATIVE: CASE EVENT DATE: 20210121
